FAERS Safety Report 24694866 (Version 1)
Quarter: 2024Q4

REPORT INFORMATION
  Report Type: Spontaneous
  Country: US (occurrence: None)
  Receive Date: 20241203
  Receipt Date: 20241203
  Transmission Date: 20250114
  Serious: Yes (unspecified)
  Sender: Public
  Company Number: None

PATIENT
  Age: 75 Year
  Sex: Female
  Weight: 65.25 kg

DRUGS (3)
  1. OMNITROPE [Suspect]
     Active Substance: SOMATROPIN
     Dosage: 0.5 MG DAILY SUBCUTANEOUS
     Route: 058
     Dates: start: 20241101, end: 20241128
  2. LEVOTHYROXINE [Concomitant]
     Active Substance: LEVOTHYROXINE
  3. ESTRADIOL [Concomitant]
     Active Substance: ESTRADIOL

REACTIONS (12)
  - Urticaria [None]
  - Body temperature increased [None]
  - Peripheral swelling [None]
  - Joint swelling [None]
  - Constipation [None]
  - Decreased appetite [None]
  - Weight increased [None]
  - Paraesthesia [None]
  - Fatigue [None]
  - Asthenia [None]
  - Pain [None]
  - Therapy cessation [None]

NARRATIVE: CASE EVENT DATE: 20241202
